FAERS Safety Report 10081226 (Version 2)
Quarter: 2014Q2

REPORT INFORMATION
  Report Type: Spontaneous
  Country: US (occurrence: US)
  Receive Date: 20140416
  Receipt Date: 20140421
  Transmission Date: 20141212
  Serious: No
  Sender: FDA-Public Use
  Company Number: US-PFIZER INC-2014102809

PATIENT
  Age: 45 Year
  Sex: Female

DRUGS (2)
  1. PROTONIX [Suspect]
     Indication: GASTROOESOPHAGEAL REFLUX DISEASE
     Dosage: UNK
  2. PROTONIX [Suspect]
     Dosage: TWICE A DAY

REACTIONS (4)
  - Injury [Unknown]
  - Dyspnoea [Unknown]
  - Malaise [Unknown]
  - Back pain [Unknown]
